FAERS Safety Report 9565499 (Version 1)
Quarter: 2013Q3

REPORT INFORMATION
  Report Type: Spontaneous
  Country: US (occurrence: US)
  Receive Date: 20130930
  Receipt Date: 20130930
  Transmission Date: 20140515
  Serious: No
  Sender: FDA-Public Use
  Company Number: US-009507513-1309USA013896

PATIENT
  Sex: Female

DRUGS (1)
  1. MIRALAX [Suspect]
     Indication: CONSTIPATION
     Dosage: UNK, QD
     Dates: start: 1978

REACTIONS (3)
  - Incorrect drug administration duration [Unknown]
  - Overdose [Unknown]
  - Product contamination [Unknown]
